FAERS Safety Report 9969292 (Version 1)
Quarter: 2014Q1

REPORT INFORMATION
  Report Type: Report from Study
  Country: US (occurrence: US)
  Receive Date: 20140306
  Receipt Date: 20140306
  Transmission Date: 20141002
  Serious: No
  Sender: FDA-Public Use
  Company Number: US-ABBVIE-13P-163-1144179-00

PATIENT
  Age: 66 Year
  Sex: Female

DRUGS (9)
  1. HUMIRA [Suspect]
     Indication: RHEUMATOID ARTHRITIS
     Dates: start: 20130611
  2. HCTZ [Concomitant]
     Indication: HYPERTENSION
     Dosage: 12.5 MG DAILY
  3. LEVOTHYROXINE [Concomitant]
     Indication: THYROID DISORDER
     Dosage: 150 MCG DAILY
  4. OMEPRAZOLE [Concomitant]
     Indication: GASTROOESOPHAGEAL REFLUX DISEASE
     Dosage: 20 MG DAILY
  5. ZETIA [Concomitant]
     Indication: BLOOD CHOLESTEROL
     Dosage: 10 MG DAILY
  6. BONIVA [Concomitant]
     Indication: OSTEITIS DEFORMANS
  7. BONIVA [Concomitant]
     Indication: OSTEOPOROSIS
  8. BENADRYL [Concomitant]
     Indication: PRODUCT USED FOR UNKNOWN INDICATION
  9. HYDROCHOLOTHIAZIDE [Concomitant]
     Indication: HYPERTENSION

REACTIONS (1)
  - Protein urine [Not Recovered/Not Resolved]
